FAERS Safety Report 18091057 (Version 2)
Quarter: 2020Q3

REPORT INFORMATION
  Report Type: Spontaneous
  Country: US (occurrence: US)
  Receive Date: 20200730
  Receipt Date: 20200923
  Transmission Date: 20201103
  Serious: Yes (Hospitalization)
  Sender: FDA-Public Use
  Company Number: US-ALEXION-A202010788

PATIENT
  Age: 2 Year
  Sex: Female

DRUGS (2)
  1. SOLIRIS [Suspect]
     Active Substance: ECULIZUMAB
     Indication: OFF LABEL USE
     Dosage: QW, TOTAL OF 5 DOSES
     Route: 065
  2. SOLIRIS [Suspect]
     Active Substance: ECULIZUMAB
     Indication: HAEMOLYTIC URAEMIC SYNDROME

REACTIONS (7)
  - Off label use [Unknown]
  - Cyst [Unknown]
  - Transfusion [Unknown]
  - Platelet transfusion [Unknown]
  - Full blood count abnormal [Unknown]
  - C-reactive protein decreased [Unknown]
  - Renal replacement therapy [Unknown]
